FAERS Safety Report 9766354 (Version 1)
Quarter: 2013Q4

REPORT INFORMATION
  Report Type: Spontaneous
  Country: US (occurrence: None)
  Receive Date: 20131213
  Receipt Date: 20131213
  Transmission Date: 20140711
  Serious: Yes (Other)
  Sender: FDA-Public Use
  Company Number: 2013SA029859

PATIENT
  Sex: Female

DRUGS (8)
  1. ICY HOT BACK PATCH [Suspect]
     Indication: PRODUCT USED FOR UNKNOWN INDICATION
     Dosage: ; ONCE ; TOPICAL
  2. SPIRIVA [Concomitant]
  3. ADVAIR [Concomitant]
  4. SYNTHROID [Concomitant]
  5. ETODOLAC [Concomitant]
  6. THYROID THERAPY [Concomitant]
  7. LEVOXYL [Concomitant]
  8. ANTIHYPERTENSIVES [Concomitant]

REACTIONS (7)
  - Thermal burn [None]
  - Off label use [None]
  - Erythema [None]
  - Contusion [None]
  - Rash [None]
  - Pain [None]
  - Oral pain [None]
